FAERS Safety Report 8508176 (Version 6)
Quarter: 2013Q3

REPORT INFORMATION
  Report Type: Spontaneous
  Country: US (occurrence: US)
  Receive Date: 20120412
  Receipt Date: 20130912
  Transmission Date: 20140515
  Serious: Yes (Hospitalization, Other)
  Sender: FDA-Public Use
  Company Number: US-ASTRAZENECA-2012SE07226

PATIENT
  Age: 47 Year
  Sex: Female
  Weight: 81.6 kg

DRUGS (24)
  1. NEXIUM [Suspect]
     Indication: HIATUS HERNIA
     Route: 048
  2. NEXIUM [Suspect]
     Indication: GASTROOESOPHAGEAL REFLUX DISEASE
     Route: 048
  3. NEXIUM [Suspect]
     Indication: HYPERCHLORHYDRIA
     Route: 048
  4. NEXIUM [Suspect]
     Indication: HIATUS HERNIA
     Route: 048
     Dates: end: 20130826
  5. NEXIUM [Suspect]
     Indication: GASTROOESOPHAGEAL REFLUX DISEASE
     Route: 048
     Dates: end: 20130826
  6. NEXIUM [Suspect]
     Indication: HYPERCHLORHYDRIA
     Route: 048
     Dates: end: 20130826
  7. PRILOSEC [Suspect]
     Indication: HIATUS HERNIA
     Route: 048
  8. PRILOSEC [Suspect]
     Indication: GASTROOESOPHAGEAL REFLUX DISEASE
     Route: 048
  9. PRILOSEC [Suspect]
     Indication: HIATUS HERNIA
     Dosage: OMEPRAZOLE RX
     Route: 048
     Dates: start: 2000
  10. PRILOSEC [Suspect]
     Indication: GASTROOESOPHAGEAL REFLUX DISEASE
     Dosage: OMEPRAZOLE RX
     Route: 048
     Dates: start: 2000
  11. PEPCID [Concomitant]
  12. FAMOTIDINE [Concomitant]
     Indication: GASTRIC DISORDER
     Route: 048
     Dates: start: 2012
  13. IBUPROFEN [Concomitant]
     Indication: ARTHRALGIA
     Route: 048
  14. NORTRIPTYLINE [Concomitant]
     Indication: IRRITABLE BOWEL SYNDROME
     Route: 048
     Dates: start: 2006
  15. NORTRIPTYLINE [Concomitant]
     Indication: STRESS
     Route: 048
     Dates: start: 2006
  16. NAPROXEN [Concomitant]
     Dosage: UNKNOWN
  17. SIMVASTATIN [Concomitant]
     Indication: BLOOD CHOLESTEROL ABNORMAL
     Route: 048
     Dates: start: 1998
  18. CITALOPRAM [Concomitant]
     Indication: STRESS
     Route: 048
     Dates: start: 2012
  19. ARMOUR THYROID [Concomitant]
     Indication: THYROID DISORDER
     Route: 048
     Dates: start: 2000
  20. ALPRAZOLAM [Concomitant]
     Indication: STRESS
     Route: 048
  21. EPIDUO [Concomitant]
     Indication: ACNE
     Dosage: UNKNOWN DAILY
     Route: 061
     Dates: start: 2012
  22. PHENTOYIN [Concomitant]
     Indication: ASTHMA
     Route: 055
     Dates: start: 1986
  23. ADVAIR [Concomitant]
     Dosage: UNKNOWN
  24. PREVACID [Concomitant]

REACTIONS (21)
  - Sleep apnoea syndrome [Not Recovered/Not Resolved]
  - Pancreatitis [Unknown]
  - Chest discomfort [Unknown]
  - Malaise [Unknown]
  - Gastrooesophageal reflux disease [Unknown]
  - Hiatus hernia [Unknown]
  - Pernicious anaemia [Not Recovered/Not Resolved]
  - Hepatic steatosis [Not Recovered/Not Resolved]
  - Osteoporosis [Unknown]
  - Anxiety [Unknown]
  - Discomfort [Unknown]
  - Aphagia [Unknown]
  - Abdominal discomfort [Unknown]
  - Rash [Not Recovered/Not Resolved]
  - Depression [Not Recovered/Not Resolved]
  - Malaise [Unknown]
  - Drug dose omission [Unknown]
  - Off label use [Unknown]
  - Drug ineffective [Unknown]
  - Intentional drug misuse [Unknown]
  - Drug ineffective [Unknown]
